FAERS Safety Report 9376416 (Version 1)
Quarter: 2013Q2

REPORT INFORMATION
  Report Type: Spontaneous
  Country: MX (occurrence: MX)
  Receive Date: 20130630
  Receipt Date: 20130630
  Transmission Date: 20140414
  Serious: Yes (Hospitalization)
  Sender: FDA-Public Use
  Company Number: MX-009507513-1306MEX011528

PATIENT
  Sex: Female

DRUGS (1)
  1. IMPLANON [Suspect]
     Indication: CONTRACEPTION
     Dosage: 60-70UG/D WEEK 5-6,35-45UG/D END OF 1ST YEAR,30-40UG/D END OF 2ND YEAR,25-30UG/D END OF 3ND YEAR,3Y
     Route: 059

REACTIONS (7)
  - Device difficult to use [Not Recovered/Not Resolved]
  - Medical device complication [Not Recovered/Not Resolved]
  - Device dislocation [Not Recovered/Not Resolved]
  - Complication of device removal [Not Recovered/Not Resolved]
  - Ecchymosis [Not Recovered/Not Resolved]
  - Back pain [Unknown]
  - Emotional disorder [Unknown]
